FAERS Safety Report 7213288-9 (Version None)
Quarter: 2010Q4

REPORT INFORMATION
  Report Type: 
  Country: None (occurrence: None)
  Receive Date: 20101229
  Receipt Date: 20101213
  Transmission Date: 20110411
  Serious: Yes (Other)
  Sender: FDA-Public Use
  Company Number: DSA_44578_2010

PATIENT
  Sex: Female

DRUGS (1)
  1. MASDIL (MASDIL - DILTIAZEM HYDROCHLORIDE) 120 MG (NOT SPECIFIED [Suspect]
     Indication: PRODUCT USED FOR UNKNOWN INDICATION
     Dosage: (120 MG, FREQUENCY UNKNOWN ORAL)
     Route: 048
     Dates: start: 20100901

REACTIONS (2)
  - HEART RATE DECREASED [None]
  - LOSS OF CONSCIOUSNESS [None]
